FAERS Safety Report 24608170 (Version 1)
Quarter: 2024Q4

REPORT INFORMATION
  Report Type: Spontaneous
  Country: US (occurrence: None)
  Receive Date: 20241111
  Receipt Date: 20241111
  Transmission Date: 20250115
  Serious: Yes (Death)
  Sender: Public
  Company Number: None

PATIENT
  Age: 30 Year
  Sex: Female
  Weight: 93.6 kg

DRUGS (5)
  1. PHENTERMINE [Suspect]
     Active Substance: PHENTERMINE\PHENTERMINE HYDROCHLORIDE
     Indication: Obesity
     Dosage: FREQUENCY : DAILY;?
     Route: 048
     Dates: start: 20240601, end: 20240907
  2. NORETHINDRONE ACETATE AND ETHINYL ESTRADIOL [Concomitant]
     Active Substance: ETHINYL ESTRADIOL\NORETHINDRONE ACETATE
  3. Triamcinolone aceonide nasal spray [Concomitant]
  4. ONDANSETRON [Concomitant]
     Active Substance: ONDANSETRON
  5. CETIRIZINE [Concomitant]
     Active Substance: CETIRIZINE HYDROCHLORIDE

REACTIONS (10)
  - Nausea [None]
  - Dizziness [None]
  - Back pain [None]
  - Unresponsive to stimuli [None]
  - Coronary artery stenosis [None]
  - Arteriosclerosis coronary artery [None]
  - Coronary artery thrombosis [None]
  - Acute myocardial infarction [None]
  - Microvascular coronary artery disease [None]
  - Arteriospasm coronary [None]

NARRATIVE: CASE EVENT DATE: 20240907
